FAERS Safety Report 24725097 (Version 1)
Quarter: 2024Q4

REPORT INFORMATION
  Report Type: Spontaneous
  Country: US (occurrence: US)
  Receive Date: 20241212
  Receipt Date: 20241212
  Transmission Date: 20250114
  Serious: Yes (Other)
  Sender: ORGANON
  Company Number: US-ORGANON-O2412USA000208

PATIENT
  Sex: Male

DRUGS (2)
  1. ZETIA [Suspect]
     Active Substance: EZETIMIBE
     Dosage: UNK
     Route: 048
  2. ZETIA [Suspect]
     Active Substance: EZETIMIBE
     Dosage: UNK
     Route: 048

REACTIONS (10)
  - Dementia [Unknown]
  - Muscle rupture [Recovering/Resolving]
  - Brain fog [Unknown]
  - Arthralgia [Unknown]
  - Road traffic accident [Unknown]
  - Blood cholesterol increased [Unknown]
  - Low density lipoprotein abnormal [Unknown]
  - Myalgia [Not Recovered/Not Resolved]
  - High density lipoprotein abnormal [Unknown]
  - Confusional state [Unknown]

NARRATIVE: CASE EVENT DATE: 20230101
